FAERS Safety Report 9416661 (Version 2)
Quarter: 2013Q3

REPORT INFORMATION
  Report Type: Spontaneous
  Country: CA (occurrence: CA)
  Receive Date: 20130724
  Receipt Date: 20130906
  Transmission Date: 20140515
  Serious: Yes (Hospitalization)
  Sender: FDA-Public Use
  Company Number: CA-ASTELLAS-2013US007687

PATIENT
  Age: 79 Year
  Sex: Male

DRUGS (3)
  1. XTANDI [Suspect]
     Indication: NEOPLASM MALIGNANT
     Dosage: 160 MG, UID/QD
     Route: 048
     Dates: start: 20130626, end: 20130707
  2. XTANDI [Suspect]
     Dosage: 160 MG, UID/QD
     Route: 048
     Dates: start: 20130709
  3. HORMONES [Concomitant]
     Indication: PRODUCT USED FOR UNKNOWN INDICATION
     Dosage: UNK
     Route: 065

REACTIONS (6)
  - Renal failure [Unknown]
  - Urinary tract infection [Unknown]
  - Pneumonia [Unknown]
  - Urinary tract infection [Unknown]
  - Hot flush [Unknown]
  - Headache [Unknown]
